FAERS Safety Report 6776119-7 (Version None)
Quarter: 2010Q2

REPORT INFORMATION
  Report Type: 
  Country: None (occurrence: None)
  Receive Date: 20100617
  Receipt Date: 20100615
  Transmission Date: 20101027
  Serious: Yes (Hospitalization)
  Sender: FDA-Public Use
  Company Number: US-GILEAD-2010-0029059

PATIENT
  Sex: Female
  Weight: 79.45 kg

DRUGS (11)
  1. LETAIRIS [Suspect]
     Indication: PULMONARY ARTERIAL HYPERTENSION
     Route: 048
  2. REVATIO [Concomitant]
  3. ASPIRIN [Concomitant]
  4. ATENOLOL [Concomitant]
  5. XANAX [Concomitant]
  6. NEXIUM [Concomitant]
  7. DARVOCET [Concomitant]
  8. VITAMIN C [Concomitant]
  9. VITAMIN E [Concomitant]
  10. FISH OIL [Concomitant]
  11. LOVAZA [Concomitant]

REACTIONS (3)
  - CHEST PAIN [None]
  - IMMUNISATION REACTION [None]
  - PALPITATIONS [None]
